FAERS Safety Report 4454005-5 (Version None)
Quarter: 2004Q3

REPORT INFORMATION
  Report Type: 
  Country: None (occurrence: None)
  Receive Date: 20040902
  Receipt Date: 20040706
  Transmission Date: 20050211
  Serious: No
  Sender: FDA-Public Use
  Company Number: 200419044BWH

PATIENT
  Age: 62 Year
  Sex: Male
  Weight: 79.3795 kg

DRUGS (4)
  1. LEVITRA [Suspect]
     Dosage: 10 MG, TOTAL DAILY, ORAL; 20 MG, TOTAL DAILY, ORAL
     Route: 048
     Dates: start: 20040601
  2. LEVITRA [Suspect]
     Dosage: 10 MG, TOTAL DAILY, ORAL; 20 MG, TOTAL DAILY, ORAL
     Route: 048
     Dates: start: 20040704
  3. CELEBREX [Concomitant]
  4. NEURONTIN [Concomitant]

REACTIONS (1)
  - ERECTILE DYSFUNCTION [None]
